FAERS Safety Report 4918353-4 (Version None)
Quarter: 2006Q1

REPORT INFORMATION
  Report Type: 
  Country: None (occurrence: None)
  Receive Date: 20060214
  Receipt Date: 20060131
  Transmission Date: 20060701
  Serious: Yes (Death, Hospitalization)
  Sender: FDA-Public Use
  Company Number: 13563

PATIENT
  Age: 78 Year
  Sex: Female

DRUGS (4)
  1. CLOFARABINE [Suspect]
     Indication: ACUTE MYELOID LEUKAEMIA
     Dosage: 54 MG QD IV
     Route: 042
     Dates: start: 20050224, end: 20050228
  2. CYCLIZINE [Concomitant]
  3. DEXAMETHASONE [Concomitant]
  4. HALOPERIDOL [Concomitant]

REACTIONS (4)
  - ENTEROCOCCAL SEPSIS [None]
  - PLATELET COUNT DECREASED [None]
  - RENAL FAILURE [None]
  - URINARY TRACT INFECTION [None]
